FAERS Safety Report 7472464-0 (Version None)
Quarter: 2011Q2

REPORT INFORMATION
  Report Type: 
  Country: None (occurrence: None)
  Receive Date: 20110511
  Receipt Date: 20110429
  Transmission Date: 20111010
  Serious: Yes (Death, Hospitalization, Other)
  Sender: FDA-Public Use
  Company Number: PHHY2011US36872

PATIENT
  Age: 67 Year
  Sex: Male

DRUGS (2)
  1. PSYCHOTIC MEDICINES [Concomitant]
  2. EXELON [Suspect]
     Indication: DEMENTIA ALZHEIMER'S TYPE
     Dosage: 9.5 MG, ONE PATCH DAILY

REACTIONS (4)
  - GENERAL PHYSICAL HEALTH DETERIORATION [None]
  - SOMNOLENCE [None]
  - URINARY TRACT INFECTION [None]
  - NEPHROPATHY TOXIC [None]
